FAERS Safety Report 5809773-4 (Version None)
Quarter: 2008Q3

REPORT INFORMATION
  Report Type: 
  Country: None (occurrence: None)
  Receive Date: 20080715
  Receipt Date: 20080710
  Transmission Date: 20090109
  Serious: Yes (Other)
  Sender: FDA-Public Use
  Company Number: TR-AVENTIS-200812795GDDC

PATIENT
  Age: 56 Year
  Sex: Female
  Weight: 94 kg

DRUGS (6)
  1. LANTUS [Suspect]
     Indication: TYPE 2 DIABETES MELLITUS
     Route: 058
     Dates: start: 20070301, end: 20080314
  2. AUTOPEN 24 [Suspect]
     Route: 058
  3. METFORMIN HYDROCHLORIDE [Concomitant]
     Dosage: DOSE QUANTITY: 3
     Route: 048
  4. PIOGLITAZONE HCL [Concomitant]
     Dosage: DOSE QUANTITY: 1
     Route: 048
  5. CARVEDILOL [Concomitant]
     Dosage: DOSE QUANTITY: 2
     Route: 048
  6. MONOPRIL [Concomitant]
     Indication: HYPERTENSION
     Dosage: DOSE QUANTITY: 3
     Route: 048

REACTIONS (2)
  - OEDEMA PERIPHERAL [None]
  - WEIGHT INCREASED [None]
